FAERS Safety Report 5638688-X (Version None)
Quarter: 2008Q1

REPORT INFORMATION
  Report Type: 
  Country: None (occurrence: None)
  Receive Date: 20080226
  Receipt Date: 20080129
  Transmission Date: 20080703
  Serious: No
  Sender: FDA-Public Use
  Company Number: A0689791A

PATIENT
  Age: 49 Year
  Sex: Female

DRUGS (7)
  1. IMITREX [Suspect]
     Indication: MIGRAINE
     Dosage: 1INJ AS REQUIRED
     Route: 058
     Dates: start: 20070101
  2. WELLBUTRIN XL [Concomitant]
  3. DYAZIDE [Concomitant]
  4. NORTRIPTYLINE HCL [Concomitant]
  5. PHENERGAN HCL [Concomitant]
  6. EFFEXOR [Concomitant]
  7. LAMICTAL [Concomitant]

REACTIONS (3)
  - DRUG INEFFECTIVE [None]
  - INJECTION SITE IRRITATION [None]
  - PHARMACEUTICAL PRODUCT COMPLAINT [None]
